FAERS Safety Report 5723358-X (Version None)
Quarter: 2008Q2

REPORT INFORMATION
  Report Type: 
  Country: None (occurrence: None)
  Receive Date: 20080429
  Receipt Date: 20080429
  Transmission Date: 20081010
  Serious: Yes (Life-Threatening)
  Sender: FDA-Public Use
  Company Number: None

PATIENT
  Sex: Female
  Weight: 88.4514 kg

DRUGS (1)
  1. LISINOPRIL [Suspect]
     Indication: CARDIAC DISORDER
     Dosage: 5MG DAILY PO
     Route: 048
     Dates: start: 20080423, end: 20080426

REACTIONS (3)
  - ABDOMINAL PAIN UPPER [None]
  - HEART RATE INCREASED [None]
  - PHARMACEUTICAL PRODUCT COMPLAINT [None]
